FAERS Safety Report 4848491-6 (Version None)
Quarter: 2005Q4

REPORT INFORMATION
  Report Type: 
  Country: None (occurrence: None)
  Receive Date: 20051208
  Receipt Date: 20051101
  Transmission Date: 20060501
  Serious: Yes (Other)
  Sender: FDA-Public Use
  Company Number: PHEH2005US12209

PATIENT
  Sex: Male

DRUGS (2)
  1. ZOMETA [Suspect]
     Indication: BREAST CANCER METASTATIC
     Dosage: UNSPECIFIED
  2. AREDIA [Suspect]
     Indication: MULTIPLE MYELOMA

REACTIONS (8)
  - BONE FORMATION INCREASED [None]
  - DEFORMITY [None]
  - HYPOAESTHESIA [None]
  - OSTEONECROSIS [None]
  - OSTEOPETROSIS [None]
  - PAIN [None]
  - PATHOLOGICAL FRACTURE [None]
  - SWELLING [None]
